FAERS Safety Report 11905628 (Version 1)
Quarter: 2016Q1

REPORT INFORMATION
  Report Type: Report from Study
  Country: US (occurrence: US)
  Receive Date: 20160109
  Receipt Date: 20160109
  Transmission Date: 20160526
  Serious: Yes (Other)
  Sender: FDA-Public Use
  Company Number: US-AMGEN-USASL2016000367

PATIENT
  Sex: Female

DRUGS (1)
  1. PROLIA [Suspect]
     Active Substance: DENOSUMAB
     Indication: PRODUCT USED FOR UNKNOWN INDICATION
     Dosage: UNK
     Route: 065

REACTIONS (9)
  - Fall [Unknown]
  - Nervous system disorder [Unknown]
  - Upper limb fracture [Unknown]
  - Tooth fracture [Unknown]
  - Oral surgery [Unknown]
  - Visual impairment [Unknown]
  - Toothache [Unknown]
  - Cerebrovascular accident [Unknown]
  - Tooth erosion [Unknown]
